FAERS Safety Report 15561177 (Version 1)
Quarter: 2018Q4

REPORT INFORMATION
  Report Type: Spontaneous
  Country: JP (occurrence: JP)
  Receive Date: 20181029
  Receipt Date: 20181029
  Transmission Date: 20190205
  Serious: Yes (Other)
  Sender: FDA-Public Use
  Company Number: JP-PFIZER INC-2018344907

PATIENT
  Age: 41 Year
  Sex: Female

DRUGS (3)
  1. MYSLEE [Concomitant]
     Active Substance: ZOLPIDEM TARTRATE
     Indication: INSOMNIA
     Dosage: UNK UNK, OCCATIONALLY TAKING
     Route: 048
  2. REBAMIPIDE [Concomitant]
     Active Substance: REBAMIPIDE
     Indication: GASTRITIS
     Dosage: UNK UNK, UNKNOWN FREQ.
     Route: 048
     Dates: start: 201805
  3. CELECOX [Suspect]
     Active Substance: CELECOXIB
     Indication: BACK PAIN
     Dosage: UNK UNK, TWICE DAILY
     Route: 048
     Dates: start: 201805

REACTIONS (2)
  - Nail pigmentation [Not Recovered/Not Resolved]
  - Onycholysis [Not Recovered/Not Resolved]

NARRATIVE: CASE EVENT DATE: 201806
